FAERS Safety Report 8120557-7 (Version None)
Quarter: 2012Q1

REPORT INFORMATION
  Report Type: 
  Country: None (occurrence: None)
  Receive Date: 20120207
  Receipt Date: 20120127
  Transmission Date: 20120608
  Serious: Yes (Other)
  Sender: FDA-Public Use
  Company Number: US-JNJFOC-20120202698

PATIENT
  Sex: Female
  Weight: 60.33 kg

DRUGS (8)
  1. SIMPONI [Suspect]
     Indication: RHEUMATOID ARTHRITIS
     Route: 058
     Dates: start: 20120125
  2. XANAX [Concomitant]
     Indication: ANXIETY
     Route: 048
     Dates: start: 20110101
  3. BENADRYL [Concomitant]
     Indication: MULTIPLE ALLERGIES
     Route: 048
     Dates: start: 20080101
  4. VITAMIN [Concomitant]
     Route: 048
     Dates: start: 20080101
  5. LEVOTHYROXINE SODIUM [Concomitant]
     Indication: HYPOTHYROIDISM
     Route: 048
     Dates: start: 20080101
  6. ZYRTEC [Concomitant]
     Indication: MULTIPLE ALLERGIES
     Route: 048
     Dates: start: 20080101
  7. SIMPONI [Suspect]
     Route: 058
     Dates: start: 20111101
  8. RESTORIL [Concomitant]
     Route: 048
     Dates: start: 20110101

REACTIONS (7)
  - FEELING HOT [None]
  - ARTHRALGIA [None]
  - BONE LOSS [None]
  - INFLAMMATION [None]
  - MUSCULAR WEAKNESS [None]
  - PAIN IN EXTREMITY [None]
  - DEVICE MALFUNCTION [None]
